FAERS Safety Report 15825775 (Version 1)
Quarter: 2018Q4

REPORT INFORMATION
  Report Type: Spontaneous
  Country: US (occurrence: US)
  Receive Date: 20181217
  Receipt Date: 20181217
  Transmission Date: 20190205
  Serious: Yes (Hospitalization)
  Sender: FDA-Public Use
  Company Number: None

PATIENT
  Age: 19 Year
  Sex: Male
  Weight: 115.3 kg

DRUGS (6)
  1. ONCASPAR [Suspect]
     Active Substance: PEGASPARGASE
     Dates: end: 20181125
  2. METHOTREXATE. [Suspect]
     Active Substance: METHOTREXATE
     Dates: end: 20181130
  3. DAUNORUBICIN [Suspect]
     Active Substance: DAUNORUBICIN
     Dates: end: 20181203
  4. VINCRISTINE SULFATE. [Suspect]
     Active Substance: VINCRISTINE SULFATE
     Dates: end: 20181206
  5. PREDNISONE. [Suspect]
     Active Substance: PREDNISONE
     Dates: end: 20181211
  6. CYTARABINE. [Suspect]
     Active Substance: CYTARABINE
     Dates: end: 20181203

REACTIONS (6)
  - Clostridium difficile colitis [None]
  - Diarrhoea haemorrhagic [None]
  - Cellulitis [None]
  - Abscess [None]
  - Septic shock [None]
  - Myositis [None]

NARRATIVE: CASE EVENT DATE: 20181210
